FAERS Safety Report 4298751-5 (Version None)
Quarter: 2004Q1

REPORT INFORMATION
  Report Type: 
  Country: None (occurrence: None)
  Receive Date: 20040126
  Receipt Date: 20030911
  Transmission Date: 20041129
  Serious: No
  Sender: FDA-Public Use
  Company Number: USA030946944

PATIENT
  Age: 55 Year
  Sex: Female
  Weight: 64 kg

DRUGS (3)
  1. STRATTERA [Suspect]
     Indication: TRAUMATIC BRAIN INJURY
     Dosage: 40 MG/1 IN THE MORNING
     Dates: start: 20030906
  2. DYAZIDE [Concomitant]
  3. ZOLOFT [Concomitant]

REACTIONS (4)
  - DRUG INEFFECTIVE [None]
  - FATIGUE [None]
  - THINKING ABNORMAL [None]
  - YAWNING [None]
